FAERS Safety Report 23472636 (Version 5)
Quarter: 2024Q3

REPORT INFORMATION
  Report Type: Spontaneous
  Country: DE (occurrence: DE)
  Receive Date: 20240202
  Receipt Date: 20240704
  Transmission Date: 20241017
  Serious: Yes (Hospitalization)
  Sender: MERCK
  Company Number: DE-SAMSUNG BIOEPIS-SB-2024-02198

PATIENT
  Age: 48 Year
  Sex: Male
  Weight: 72 kg

DRUGS (6)
  1. PEMBROLIZUMAB [Suspect]
     Active Substance: PEMBROLIZUMAB
     Indication: Oesophageal adenocarcinoma
     Dosage: 200 MG FLAT DOSE, IV; D1/D22/D43 PRE-AND POST OP, ATFERWARDS D1 Q3W
     Route: 042
     Dates: start: 20230526, end: 20240110
  2. DOCETAXEL [Suspect]
     Active Substance: DOCETAXEL\DOCETAXEL ANHYDROUS
     Indication: Oesophageal adenocarcinoma
     Dosage: 50 MG/M2, IV, D1/D15/D29 AND D43 PRE-AND POST OP
     Route: 042
     Dates: start: 20230526, end: 20231114
  3. OXALIPLATIN [Suspect]
     Active Substance: OXALIPLATIN
     Indication: Oesophageal adenocarcinoma
     Dosage: 85 MG/M2, IV, D1/D15/D29 AND D43 PRE-AND POST OP
     Route: 042
     Dates: start: 20230526, end: 20231227
  4. ONTRUZANT [Suspect]
     Active Substance: TRASTUZUMAB-DTTB
     Indication: Oesophageal adenocarcinoma
     Dosage: D1: 8 MG/KG, IV; 6 MG/KG IV D22/D43 PRE- AND POST-OP, ATFERWARDS 6 MG/KG IV D1 Q3W
     Route: 042
     Dates: start: 20230526, end: 20240110
  5. FLUOROURACIL [Suspect]
     Active Substance: FLUOROURACIL
     Indication: Oesophageal adenocarcinoma
     Dosage: 2600 MG/M2, IV, D1/D15/D29 AND D43 PRE-AND POST OP
     Route: 042
     Dates: start: 20230526, end: 20231227
  6. LEUCOVORIN [Suspect]
     Active Substance: LEUCOVORIN\LEUCOVORIN CALCIUM
     Indication: Oesophageal adenocarcinoma
     Dosage: 200 MG/M2, IV, D1/D15/D29 AND D43 PRE-AND POST OP
     Route: 042
     Dates: start: 20230526, end: 20231227

REACTIONS (2)
  - Dysphagia [Recovered/Resolved]
  - Product use in unapproved indication [Unknown]

NARRATIVE: CASE EVENT DATE: 20240112
